FAERS Safety Report 8225543-4 (Version None)
Quarter: 2012Q1

REPORT INFORMATION
  Report Type: 
  Country: None (occurrence: None)
  Receive Date: 20120321
  Receipt Date: 20120312
  Transmission Date: 20120608
  Serious: Yes (Other)
  Sender: FDA-Public Use
  Company Number: CHPA2012US004681

PATIENT
  Age: 77 Year
  Sex: Female

DRUGS (1)
  1. PREVACID 24 HR [Suspect]
     Indication: GASTRIC PH DECREASED
     Dosage: 15 MG, QD
     Route: 048
     Dates: start: 20120201

REACTIONS (6)
  - DYSURIA [None]
  - OFF LABEL USE [None]
  - INCORRECT DRUG ADMINISTRATION DURATION [None]
  - HAEMATURIA [None]
  - CYSTITIS [None]
  - HYPERHIDROSIS [None]
